FAERS Safety Report 5010978-3 (Version None)
Quarter: 2006Q2

REPORT INFORMATION
  Report Type: 
  Country: None (occurrence: None)
  Receive Date: 20060523
  Receipt Date: 20060511
  Transmission Date: 20061013
  Serious: Yes (Hospitalization)
  Sender: FDA-Public Use
  Company Number: 2006-142582-NL

PATIENT
  Age: 32 Year
  Sex: Female

DRUGS (2)
  1. MENOTROPINS [Suspect]
     Dosage: DF
  2. CHORIONIC GONADOTROPIN [Suspect]
     Dosage: 5000 IU

REACTIONS (7)
  - BREECH PRESENTATION [None]
  - CAESAREAN SECTION [None]
  - DRUG EXPOSURE DURING PREGNANCY [None]
  - OVARIAN ENLARGEMENT [None]
  - OVARIAN TORSION [None]
  - POLYCYSTIC OVARIES [None]
  - PREGNANCY [None]
